FAERS Safety Report 5418278-4 (Version None)
Quarter: 2007Q3

REPORT INFORMATION
  Report Type: 
  Country: None (occurrence: None)
  Receive Date: 20070817
  Receipt Date: 20070813
  Transmission Date: 20080115
  Serious: Yes (Hospitalization)
  Sender: FDA-Public Use
  Company Number: B0483533A

PATIENT
  Age: 16 Year
  Sex: Male

DRUGS (15)
  1. FORTUM [Suspect]
     Route: 042
     Dates: start: 20051209, end: 20051214
  2. ROCEPHINE IV [Suspect]
     Route: 042
     Dates: start: 20051207, end: 20051209
  3. FOSFOMYCINE [Suspect]
     Route: 042
     Dates: start: 20051207, end: 20051209
  4. PYOSTACINE [Suspect]
     Route: 048
     Dates: start: 20051209, end: 20051214
  5. VANCOMYCIN [Suspect]
     Route: 042
     Dates: start: 20051209, end: 20051214
  6. ZYVOX [Suspect]
     Route: 042
     Dates: start: 20051209, end: 20051214
  7. LEVOPHED [Suspect]
     Route: 065
     Dates: start: 20050101
  8. TRACRIUM [Suspect]
     Route: 065
     Dates: start: 20050101
  9. HYPNOVEL [Suspect]
     Route: 065
     Dates: start: 20050101
  10. FENTANYL [Suspect]
     Route: 065
     Dates: start: 20050101
  11. SUCRALFATE [Suspect]
     Route: 065
     Dates: start: 20050101
  12. GARDAN TAB [Suspect]
     Route: 065
     Dates: start: 20050101
  13. THIOPENTAL SODIUM [Suspect]
     Route: 065
     Dates: start: 20050101
  14. MUCOMYST [Suspect]
     Route: 065
     Dates: start: 20050101
  15. BRICANYL [Concomitant]
     Indication: ASTHMA
     Route: 065

REACTIONS (8)
  - CYTOLYTIC HEPATITIS [None]
  - DRUG RASH WITH EOSINOPHILIA AND SYSTEMIC SYMPTOMS [None]
  - EOSINOPHILIA [None]
  - FACE OEDEMA [None]
  - GENERALISED OEDEMA [None]
  - PYREXIA [None]
  - RASH [None]
  - SKIN EXFOLIATION [None]
